FAERS Safety Report 14249623 (Version 3)
Quarter: 2017Q4

REPORT INFORMATION
  Report Type: Spontaneous
  Country: US (occurrence: US)
  Receive Date: 20171205
  Receipt Date: 20171229
  Transmission Date: 20180321
  Serious: No
  Sender: FDA-Public Use
  Company Number: US-AMGEN-USASP2017179482

PATIENT
  Age: 54 Year
  Sex: Female
  Weight: 60.77 kg

DRUGS (10)
  1. LEVOTHYROXINE SODIUM. [Concomitant]
     Active Substance: LEVOTHYROXINE SODIUM
     Indication: AUTOIMMUNE THYROID DISORDER
     Dosage: 112 MUG, QD
     Route: 048
  2. PROGESTERONE. [Concomitant]
     Active Substance: PROGESTERONE
     Dosage: UNK UNK, QD
     Route: 048
  3. ENBREL [Suspect]
     Active Substance: ETANERCEPT
     Indication: RHEUMATOID ARTHRITIS
     Dosage: 50 MG, QWK
     Route: 058
     Dates: start: 20171113
  4. PREDNISONE. [Concomitant]
     Active Substance: PREDNISONE
     Dosage: 1 MG, 4 TABLETS WITH FOOD OR MILK QD
     Route: 048
  5. ESTROGEN [Concomitant]
     Active Substance: ESTROGENS
     Dosage: UNK
     Route: 065
  6. LIOTHYRONINE SODIUM. [Concomitant]
     Active Substance: LIOTHYRONINE SODIUM
     Dosage: 75 MG, QD
     Route: 065
  7. ADVIL [Concomitant]
     Active Substance: IBUPROFEN
     Dosage: 200 MG, 3 TABLETS AS NEEDED Q6H
     Route: 048
  8. TRIAMCINOLONE ACETONIDE. [Concomitant]
     Active Substance: TRIAMCINOLONE ACETONIDE
     Dosage: 1 APPLICATION TO AFFECTED AREA EXTERNALLY, BID
  9. PREDNISONE. [Concomitant]
     Active Substance: PREDNISONE
     Dosage: 5 MG, QD
     Route: 048
  10. PLAQUENIL [Concomitant]
     Active Substance: HYDROXYCHLOROQUINE SULFATE
     Dosage: 200 MG, BID, AS REQUIRED
     Route: 048

REACTIONS (16)
  - Condition aggravated [Unknown]
  - Injection site pruritus [Unknown]
  - Eczema [Unknown]
  - Injection site swelling [Unknown]
  - Transaminases increased [Unknown]
  - Burning sensation [Unknown]
  - Injection site erythema [Unknown]
  - Injection site discolouration [Unknown]
  - Injection site pain [Recovering/Resolving]
  - Injection site urticaria [Unknown]
  - Injection site warmth [Unknown]
  - Depression [Unknown]
  - Lymphadenopathy [Unknown]
  - Injection site vesicles [Unknown]
  - Injection site rash [Unknown]
  - Limb mass [Unknown]

NARRATIVE: CASE EVENT DATE: 2017
